FAERS Safety Report 7083580-X (Version None)
Quarter: 2010Q4

REPORT INFORMATION
  Report Type: 
  Country: None (occurrence: None)
  Receive Date: 20101027
  Receipt Date: 20101015
  Transmission Date: 20110411
  Serious: Yes (Hospitalization)
  Sender: FDA-Public Use
  Company Number: 020536

PATIENT
  Age: 56 Year
  Sex: Male

DRUGS (4)
  1. KEPPRA [Suspect]
     Indication: EPILEPSY
     Dosage: (500 MG BID ORAL)
     Route: 048
     Dates: start: 20100701
  2. OMEPRAZOLE [Concomitant]
  3. DECADRON [Concomitant]
  4. LASIX [Concomitant]

REACTIONS (2)
  - FEBRILE CONVULSION [None]
  - PETECHIAE [None]
